FAERS Safety Report 4816016-7 (Version None)
Quarter: 2005Q4

REPORT INFORMATION
  Report Type: 
  Country: None (occurrence: None)
  Receive Date: 20051031
  Receipt Date: 20050808
  Transmission Date: 20060501
  Serious: Yes (Other)
  Sender: FDA-Public Use
  Company Number: DE-BOEHRINGER INGELHEIM PHARMACEUTICALS, INC.-2005-DE-03101DE

PATIENT
  Age: 41 Year
  Sex: Male
  Weight: 56 kg

DRUGS (3)
  1. VIRAMUNE [Suspect]
     Indication: HIV INFECTION
     Route: 048
     Dates: start: 19990101
  2. VIREAD [Concomitant]
     Dates: start: 20020101
  3. EPIVIR [Concomitant]
     Dates: start: 19990101

REACTIONS (2)
  - CALCIFICATION PANCREATIC DUCT [None]
  - PANCREATITIS [None]
